FAERS Safety Report 5085342-1 (Version None)
Quarter: 2006Q3

REPORT INFORMATION
  Report Type: 
  Country: None (occurrence: None)
  Receive Date: 20060817
  Receipt Date: 20060803
  Transmission Date: 20061208
  Serious: Yes (Death, Hospitalization)
  Sender: FDA-Public Use
  Company Number: 2006054383

PATIENT
  Sex: Female
  Weight: 95.2554 kg

DRUGS (1)
  1. CELEBREX [Suspect]
     Indication: ANALGESIC EFFECT
     Dosage: 400 MG (200 MG, 2 IN 1 D), ORAL
     Route: 048

REACTIONS (3)
  - MALAISE [None]
  - MYOCARDIAL INFARCTION [None]
  - PAIN [None]
